FAERS Safety Report 8336963-1 (Version None)
Quarter: 2012Q2

REPORT INFORMATION
  Report Type: 
  Country: None (occurrence: None)
  Receive Date: 20120501
  Receipt Date: 20120423
  Transmission Date: 20120825
  Serious: Yes (Hospitalization)
  Sender: FDA-Public Use
  Company Number: DSM-2012-00433

PATIENT
  Age: 65 Year
  Sex: Female

DRUGS (2)
  1. OLMESARTAN MEDOXOMIL [Suspect]
     Indication: HYPERTENSION
     Dosage: ,ORAL
     Route: 048
     Dates: start: 20080101
  2. IODINE (IODINE) (IODINE) [Concomitant]

REACTIONS (5)
  - OEDEMA PERIPHERAL [None]
  - URINARY TRACT INFECTION [None]
  - PAIN IN EXTREMITY [None]
  - DISEASE RECURRENCE [None]
  - PERICARDITIS [None]
